FAERS Safety Report 16582995 (Version 2)
Quarter: 2019Q3

REPORT INFORMATION
  Report Type: Spontaneous
  Country: BR (occurrence: BR)
  Receive Date: 20190717
  Receipt Date: 20190726
  Transmission Date: 20191004
  Serious: Yes (Death)
  Sender: FDA-Public Use
  Company Number: BR-TEVA-2019-BR-1080225

PATIENT
  Age: 69 Year
  Sex: Female
  Weight: 61 kg

DRUGS (12)
  1. DIPHENHYDRAMINE 50MG [Concomitant]
     Active Substance: DIPHENHYDRAMINE
     Dates: start: 2019
  2. ONDANSETRON 8MG [Concomitant]
     Active Substance: ONDANSETRON
     Dates: start: 2019
  3. RANITIDINE 100MG [Concomitant]
     Dates: start: 2019
  4. VONAU 8MG [Concomitant]
     Dosage: USE ONLY WHEN NECESSARY - IF VOMITING OCCURS
  5. TEVACARBO [Suspect]
     Active Substance: CARBOPLATIN
     Indication: OVARIAN NEOPLASM
     Route: 042
     Dates: start: 20190702, end: 20190712
  6. HYDROCORTISONE 500MG [Concomitant]
     Dates: start: 2019
  7. AMITRIPTYLINE 25MG [Concomitant]
     Active Substance: AMITRIPTYLINE
  8. MORPHINE 10MG [Concomitant]
     Dosage: 4/4 HOURS
  9. DEXAMETHASONE 10MG [Concomitant]
     Dates: start: 2019
  10. METICORTEN 20MG [Concomitant]
  11. OMEPRAZOLE 20MG [Concomitant]
     Active Substance: OMEPRAZOLE
  12. DRAMIN B6 (DIMIDOHYDRINATE + PYRIDOXINE HYDROCHLORIDE) [Concomitant]

REACTIONS (5)
  - Cyanosis [Fatal]
  - Cold sweat [Fatal]
  - Hyperhidrosis [Fatal]
  - Dyspnoea [Fatal]
  - Flushing [Fatal]

NARRATIVE: CASE EVENT DATE: 20190712
